FAERS Safety Report 15793602 (Version 1)
Quarter: 2019Q1

REPORT INFORMATION
  Report Type: Spontaneous
  Country: US (occurrence: US)
  Receive Date: 20190103
  Receipt Date: 20190103
  Transmission Date: 20190417
  Serious: No
  Sender: FDA-Public Use
  Company Number: None

PATIENT

DRUGS (2)
  1. POTASSIUM CITRATE. [Suspect]
     Active Substance: POTASSIUM CITRATE
  2. POTASSIUM CHLORIDE 10MEQ [Suspect]
     Active Substance: POTASSIUM CHLORIDE

REACTIONS (4)
  - Wrong product administered [None]
  - Condition aggravated [None]
  - Product dispensing error [None]
  - Nephrolithiasis [None]
